FAERS Safety Report 19423826 (Version 2)
Quarter: 2021Q3

REPORT INFORMATION
  Report Type: Other
  Country: US (occurrence: US)
  Receive Date: 20210616
  Receipt Date: 20210813
  Transmission Date: 20211014
  Serious: Yes (Hospitalization, Other)
  Sender: FDA-Public Use
  Company Number: US-COVIS PHARMA GMBH-2021COV22658

PATIENT
  Age: 19 Year
  Sex: Female

DRUGS (3)
  1. ASPRIN [Concomitant]
     Active Substance: ASPIRIN
     Indication: HIGH RISK PREGNANCY
     Dates: start: 20210113
  2. PRENATAL VITAMINS [Concomitant]
     Active Substance: VITAMINS
     Indication: HIGH RISK PREGNANCY
     Dates: start: 20210211
  3. MAKENA [Suspect]
     Active Substance: HYDROXYPROGESTERONE CAPROATE
     Indication: PREMATURE DELIVERY
     Route: 058
     Dates: start: 20210211, end: 2021

REACTIONS (4)
  - Anxiety disorder [Not Recovered/Not Resolved]
  - Premature delivery [Recovered/Resolved]
  - Product administration error [Unknown]
  - Off label use [Unknown]

NARRATIVE: CASE EVENT DATE: 2021
